FAERS Safety Report 7356971-7 (Version None)
Quarter: 2011Q1

REPORT INFORMATION
  Report Type: 
  Country: None (occurrence: None)
  Receive Date: 20110317
  Receipt Date: 20090824
  Transmission Date: 20110831
  Serious: No
  Sender: FDA-Public Use
  Company Number: 2009BI026817

PATIENT
  Sex: Female

DRUGS (1)
  1. TYSABRI [Suspect]
     Indication: MULTIPLE SCLEROSIS
     Route: 042
     Dates: start: 20071211

REACTIONS (10)
  - MUSCULOSKELETAL PAIN [None]
  - DRUG INEFFECTIVE [None]
  - DYSPHEMIA [None]
  - PAIN [None]
  - MYALGIA [None]
  - NECK PAIN [None]
  - MUSCLE SPASMS [None]
  - PARAESTHESIA [None]
  - COORDINATION ABNORMAL [None]
  - HEMIPARESIS [None]
